FAERS Safety Report 9159196 (Version 2)
Quarter: 2013Q1

REPORT INFORMATION
  Report Type: Spontaneous
  Country: US (occurrence: None)
  Receive Date: 20130212
  Receipt Date: 20130220
  Transmission Date: 20140127
  Serious: Yes (Hospitalization, Other)
  Sender: FDA-Public Use
  Company Number: JPI-P-026720

PATIENT
  Age: 72 Year
  Sex: Female
  Weight: 58.97 kg

DRUGS (6)
  1. XYREM [Suspect]
     Indication: CATAPLEXY
     Dosage: (2.25 GM, 2 IN 1 D)
     Route: 048
     Dates: start: 20100409
  2. XYREM [Suspect]
     Indication: SOMNOLENCE
     Dosage: (2.25 GM, 2 IN 1 D)
     Route: 048
     Dates: start: 20100409
  3. LISINOPRIL [Concomitant]
  4. PANTOPRAZOLE [Concomitant]
  5. METHADONE [Concomitant]
  6. IMIPRAMINE [Concomitant]

REACTIONS (37)
  - Balance disorder [None]
  - Infection [None]
  - Pyrexia [None]
  - Tremor [None]
  - Gait disturbance [None]
  - Mental disorder [None]
  - Encephalopathy [None]
  - Fatigue [None]
  - Activities of daily living impaired [None]
  - Fall [None]
  - White blood cell count increased [None]
  - Confusional state [None]
  - Gait disturbance [None]
  - Myalgia [None]
  - Cervical spinal stenosis [None]
  - Lumbar spinal stenosis [None]
  - Generalised erythema [None]
  - Burning sensation [None]
  - Headache [None]
  - Dizziness [None]
  - Nausea [None]
  - Tooth infection [None]
  - Paraesthesia [None]
  - Hypoaesthesia [None]
  - Blood pressure systolic increased [None]
  - Asthenia [None]
  - Pain [None]
  - Crying [None]
  - Muscle spasms [None]
  - Somnolence [None]
  - Condition aggravated [None]
  - Neuropathy peripheral [None]
  - Myelopathy [None]
  - Blood urea increased [None]
  - Blood creatinine increased [None]
  - Vascular insufficiency [None]
  - Dehydration [None]
